FAERS Safety Report 7050031-0 (Version None)
Quarter: 2010Q4

REPORT INFORMATION
  Report Type: 
  Country: None (occurrence: None)
  Receive Date: 20101018
  Receipt Date: 20101011
  Transmission Date: 20110411
  Serious: Yes (Hospitalization)
  Sender: FDA-Public Use
  Company Number: NL-JNJFOC-20080105742

PATIENT
  Age: 33 Year
  Sex: Female
  Weight: 93 kg

DRUGS (7)
  1. RISPERDAL CONSTA [Suspect]
     Indication: SCHIZOPHRENIA
     Route: 030
  2. IBUPROFEN [Suspect]
     Indication: PRODUCT USED FOR UNKNOWN INDICATION
     Dosage: TOOK 40 TABLETS OF IBUPROFEN
  3. AKINETON [Concomitant]
  4. EFFEXOR [Concomitant]
  5. OXAZEPAM [Concomitant]
  6. OXYBUTININE [Concomitant]
  7. LACTULOSE [Concomitant]

REACTIONS (1)
  - POISONING [None]
